FAERS Safety Report 8787919 (Version 1)
Quarter: 2012Q4

REPORT INFORMATION
  Report Type: 
  Country: US (occurrence: US)
  Receive Date: 20120914
  Receipt Date: 20120914
  Transmission Date: 20130627
  Serious: No
  Sender: FDA-Public Use
  Company Number: US-VERTEX PHARMACEUTICAL INC.-AE-2012-005849

PATIENT
  Age: 58 Year
  Sex: Male
  Weight: 102.27 kg

DRUGS (9)
  1. INCIVEK [Suspect]
     Indication: HEPATITIS C
     Route: 048
     Dates: start: 20120405
  2. PEGASYS [Concomitant]
     Indication: HEPATITIS C
     Route: 058
     Dates: start: 20120405
  3. RIBAVIRIN [Concomitant]
     Indication: HEPATITIS C
     Dates: start: 20120405
  4. LISINOPRIL [Concomitant]
     Indication: BLOOD PRESSURE
     Route: 048
  5. GLYBURIDE [Concomitant]
  6. MULTIVITAMIN [Concomitant]
  7. STOOL SOFTENER [Concomitant]
  8. GLIPIZIDE [Concomitant]
     Indication: DIABETES MELLITUS
     Route: 048
  9. TUMS [Concomitant]
     Indication: ANTACID THERAPY

REACTIONS (5)
  - Haemorrhoids [Not Recovered/Not Resolved]
  - Painful defaecation [Not Recovered/Not Resolved]
  - Anorectal discomfort [Not Recovered/Not Resolved]
  - Pruritus [Not Recovered/Not Resolved]
  - Erythema [Not Recovered/Not Resolved]
